FAERS Safety Report 12731348 (Version 1)
Quarter: 2016Q3

REPORT INFORMATION
  Report Type: Spontaneous
  Country: US (occurrence: US)
  Receive Date: 20160909
  Receipt Date: 20160909
  Transmission Date: 20161109
  Serious: No
  Sender: FDA-Public Use
  Company Number: None

PATIENT
  Age: 45 Year
  Sex: Female
  Weight: 58.5 kg

DRUGS (1)
  1. AZOR [Suspect]
     Active Substance: AMLODIPINE BESYLATE\OLMESARTAN MEDOXOMIL
     Indication: HYPERTENSION
     Dosage: OTHER STRENGTH:;OTHER DOSE:;OTHER FREQUENCY:EVENING ONCE DAILY;OTHER ROUTE:
     Route: 048
     Dates: start: 20160812, end: 20160909

REACTIONS (4)
  - Dizziness postural [None]
  - Balance disorder [None]
  - Fatigue [None]
  - Gait disturbance [None]

NARRATIVE: CASE EVENT DATE: 20160826
